FAERS Safety Report 5994759-X (Version None)
Quarter: 2008Q4

REPORT INFORMATION
  Report Type: 
  Country: None (occurrence: None)
  Receive Date: 20081209
  Receipt Date: 20080917
  Transmission Date: 20090506
  Serious: No
  Sender: FDA-Public Use
  Company Number: 002#2#2008-00665

PATIENT
  Age: 75 Year
  Sex: Female
  Weight: 90.7194 kg

DRUGS (14)
  1. NEUPRO [Suspect]
     Indication: RESTLESS LEGS SYNDROME
     Dosage: 2MG/24H,1 IN 1 D, TRANSDERMAL ; 4MG/24H,1 IN 1 D,TRANSDERMAL ; 6MG/24H,1 IN 1 D,TRANSDERMAL
     Route: 062
     Dates: start: 20070101
  2. NEUPRO [Suspect]
     Indication: RESTLESS LEGS SYNDROME
     Dosage: 2MG/24H,1 IN 1 D, TRANSDERMAL ; 4MG/24H,1 IN 1 D,TRANSDERMAL ; 6MG/24H,1 IN 1 D,TRANSDERMAL
     Route: 062
     Dates: start: 20070401
  3. NEUPRO [Suspect]
  4. THRYOID MEDS [Concomitant]
  5. ASTHMA MEDS [Concomitant]
  6. REQUIP [Concomitant]
  7. CARBIDOPA AND LEVODOPA [Concomitant]
  8. DIOVAN [Concomitant]
  9. ATENOLOL [Concomitant]
  10. SIMVASTATIN [Concomitant]
  11. LEVOXYL [Concomitant]
  12. ASPIRIN [Concomitant]
  13. LYRICA [Concomitant]
  14. QUININE SULFATE [Concomitant]

REACTIONS (4)
  - COUGH [None]
  - DRUG ADMINISTRATION ERROR [None]
  - DRUG INEFFECTIVE [None]
  - OFF LABEL USE [None]
